FAERS Safety Report 20579188 (Version 2)
Quarter: 2022Q2

REPORT INFORMATION
  Report Type: Report from Study
  Country: US (occurrence: US)
  Receive Date: 20220310
  Receipt Date: 20220414
  Transmission Date: 20220721
  Serious: Yes (Death)
  Sender: FDA-Public Use
  Company Number: US-Taiho Oncology Inc-EU-2022-00618

PATIENT
  Age: 65 Year
  Sex: Male

DRUGS (16)
  1. LONSURF [Suspect]
     Active Substance: TIPIRACIL HYDROCHLORIDE\TRIFLURIDINE
     Indication: Product used for unknown indication
     Dosage: CYCLE 1
     Route: 048
     Dates: start: 20220202, end: 2022
  2. MECLIZINE [Concomitant]
     Active Substance: MECLIZINE HYDROCHLORIDE
     Dosage: TAKE 1-2 TABLET (25- 50 MG) DAILY
     Route: 048
     Dates: start: 20220210
  3. NARCAN [Concomitant]
     Active Substance: NALOXONE HYDROCHLORIDE
     Dosage: SPRAY 0.1 ML (4 MG) IN 1 NOSTRIL, MAY REPEAT DOSE EVERY 2-3 MINUTES AS NEEDED ALTERNATING NOSTRILS W
     Route: 045
     Dates: start: 20220126
  4. ACETAMINOPHEN\HYDROCODONE [Concomitant]
     Active Substance: ACETAMINOPHEN\HYDROCODONE
     Indication: Pain
     Dosage: 5- 325 MG, TAKE 1 TABLET EVERY 4 HOURS AS NEEDED FOR PAIN.
     Route: 048
     Dates: start: 20220126
  5. CODEINE- GUAIFENESIN [Concomitant]
     Dosage: 10-100 MG/ 5 ML, TAKE 10 ML EVERY 4 HOURS AS NEEDED
     Route: 048
     Dates: start: 20220126
  6. LIDOCAINE VISCOUS [Concomitant]
     Active Substance: LIDOCAINE HYDROCHLORIDE
     Dosage: MUCOUS MEMBRANE SOLUTION, MIX WITH MAALOX OTC 60 ML AND BENADRYL OTC 60 ML , TAKE 15 ML AND SWISH AN
     Route: 048
     Dates: start: 20211207
  7. REGORAFENIB [Concomitant]
     Active Substance: REGORAFENIB
     Dosage: TAKE WITH LOW FAT, LOW CALORIE MEAL ON DAYS 1-21 OF A 28 DAY TREATMENT CYCLE.
     Route: 048
     Dates: start: 20211105
  8. NIFEDIPINE [Concomitant]
     Active Substance: NIFEDIPINE
     Dosage: EXTENDED RELEASE 24 HOURS, TAKE EVERY NIGHT BEDTIME.
     Route: 048
  9. METOPROLOL SUCCINATE [Concomitant]
     Active Substance: METOPROLOL SUCCINATE
     Dosage: EXTENDED RELEASE 24 HOURS, TAKE AT NIGHT
     Route: 048
     Dates: start: 20210920
  10. LIPITOR [Concomitant]
     Active Substance: ATORVASTATIN CALCIUM
     Dosage: TAKE AT NIGHT
     Route: 048
     Dates: start: 20210628
  11. ONDANSETRON HCL [Concomitant]
     Active Substance: ONDANSETRON HYDROCHLORIDE
     Indication: Nausea
     Dosage: TAKE AS NEEDED
     Route: 048
     Dates: start: 20210604
  12. ONDANSETRON HCL [Concomitant]
     Active Substance: ONDANSETRON HYDROCHLORIDE
     Indication: Vomiting
  13. COMPAZINE [Concomitant]
     Active Substance: PROCHLORPERAZINE MALEATE
     Indication: Nausea
     Dosage: 1 TABLET EVERY 4-6 HOURS AS NEEDED
     Route: 048
     Dates: start: 20210604
  14. COMPAZINE [Concomitant]
     Active Substance: PROCHLORPERAZINE MALEATE
     Indication: Vomiting
  15. FERROUS SULFATE [Concomitant]
     Active Substance: FERROUS SULFATE
     Dosage: 325 MG (65 MG IRON)
     Route: 048
     Dates: start: 20210523
  16. LIDOCAINE- PRILOCAINE [Concomitant]
     Dosage: 2.5 - 2.5 % TOPICAL CREAM, APPLY TO PORT SITE 30-45 MINUTES PRIOR TO USE.
     Route: 061
     Dates: start: 20200717

REACTIONS (1)
  - Disease progression [Fatal]

NARRATIVE: CASE EVENT DATE: 20220304
